FAERS Safety Report 6327003-4 (Version None)
Quarter: 2009Q3

REPORT INFORMATION
  Report Type: 
  Country: None (occurrence: None)
  Receive Date: 20090825
  Receipt Date: 20090821
  Transmission Date: 20100115
  Serious: Yes (Hospitalization)
  Sender: FDA-Public Use
  Company Number: US-B.I. PHARMACEUTICALS,INC./RIDGEFIELD-2009-BP-09902BP

PATIENT
  Sex: Male

DRUGS (8)
  1. SPIRIVA [Suspect]
     Indication: CHRONIC OBSTRUCTIVE PULMONARY DISEASE
     Dosage: 18 MCG
     Route: 055
     Dates: start: 20080101, end: 20090818
  2. IPRATROPIUM [Suspect]
     Indication: RHINORRHOEA
     Route: 045
     Dates: start: 20080101
  3. TOPROL-XL [Concomitant]
     Indication: HYPERTENSION
  4. LIPITOR [Concomitant]
     Indication: BLOOD CHOLESTEROL INCREASED
  5. PRILOSEC [Concomitant]
     Indication: GASTROOESOPHAGEAL REFLUX DISEASE
  6. ASPIRIN [Concomitant]
     Indication: PROPHYLAXIS
  7. CLARITIN (GENERIC) [Concomitant]
     Indication: SEASONAL ALLERGY
  8. DICYCLOMINE [Concomitant]
     Indication: MUSCLE SPASMS

REACTIONS (5)
  - COUGH [None]
  - DYSPHONIA [None]
  - GALLBLADDER DISORDER [None]
  - THROAT IRRITATION [None]
  - URINARY RETENTION [None]
